FAERS Safety Report 5648879-X (Version None)
Quarter: 2008Q1

REPORT INFORMATION
  Report Type: 
  Country: None (occurrence: None)
  Receive Date: 20080304
  Receipt Date: 20080220
  Transmission Date: 20080703
  Serious: No
  Sender: FDA-Public Use
  Company Number: US-BAXTER-2008BH000699

PATIENT
  Age: 73 Year
  Sex: Female

DRUGS (2)
  1. BALANCED SALT [Suspect]
     Indication: EYE IRRIGATION
     Dosage: DOSE UNIT:UNKNOWN
     Route: 031
     Dates: start: 20080101, end: 20080101
  2. EPINEPHRINE [Concomitant]
     Indication: EYE IRRIGATION
     Route: 031
     Dates: start: 20080101, end: 20080101

REACTIONS (2)
  - EYE INFLAMMATION [None]
  - THERAPEUTIC PRODUCT CONTAMINATION [None]
